FAERS Safety Report 7684179-4 (Version None)
Quarter: 2011Q3

REPORT INFORMATION
  Report Type: 
  Country: None (occurrence: None)
  Receive Date: 20110815
  Receipt Date: 20110805
  Transmission Date: 20111222
  Serious: Yes (Hospitalization, Other)
  Sender: FDA-Public Use
  Company Number: US-BAYER-201038680NA

PATIENT
  Age: 34 Year
  Sex: Female
  Weight: 147.39 kg

DRUGS (19)
  1. METHADONE HYDROCHLORIDE [Concomitant]
  2. VYTORIN [Concomitant]
  3. HYDROCODONE [Concomitant]
  4. ROXICODONE [Concomitant]
  5. LEXAPRO [Concomitant]
  6. ALPRAZOLAM [Concomitant]
  7. OMEPRAZOLE [Concomitant]
  8. FOLIC ACID [Concomitant]
  9. FERROUS SULFATE TAB [Concomitant]
  10. METROGEL [Concomitant]
  11. TYLENOL W/ CODEINE [Concomitant]
     Dosage: UNK UNK, PRN
  12. PRILOSEC [Concomitant]
  13. FIORICET [Concomitant]
     Dosage: UNK UNK, PRN
  14. XANAX [Concomitant]
     Dosage: UNK UNK, PRN
  15. BUPROPION HCL [Concomitant]
  16. IBUPROFEN [Concomitant]
  17. WELLBUTRIN [Concomitant]
  18. YASMIN [Suspect]
     Dosage: UNK
     Route: 048
     Dates: start: 20060201, end: 20060901
  19. VICODIN [Concomitant]
     Dosage: UNK UNK, PRN

REACTIONS (5)
  - PULMONARY EMBOLISM [None]
  - CHOLECYSTECTOMY [None]
  - DEEP VEIN THROMBOSIS [None]
  - CHOLELITHIASIS [None]
  - CHOLECYSTITIS CHRONIC [None]
